FAERS Safety Report 5976326-7 (Version None)
Quarter: 2008Q4

REPORT INFORMATION
  Report Type: 
  Country: None (occurrence: None)
  Receive Date: 20081202
  Receipt Date: 20081125
  Transmission Date: 20090506
  Serious: Yes (Other)
  Sender: FDA-Public Use
  Company Number: DE-ROXANE LABORATORIES, INC.-2008-RO-00281RO

PATIENT
  Age: 70 Year
  Sex: Female

DRUGS (7)
  1. PREDNISONE TAB [Suspect]
     Indication: PEMPHIGUS
     Dosage: 50MG
  2. PREDNISONE TAB [Suspect]
     Dosage: 20MG
  3. AZATHIOPRINE [Suspect]
     Indication: PEMPHIGUS
     Dosage: 50MG
  4. ACYCLOVIR [Concomitant]
     Indication: HERPES SIMPLEX
     Dosage: 1G
  5. ACYCLOVIR [Concomitant]
     Dosage: 2G
     Route: 042
  6. RITUXIMAB [Concomitant]
     Indication: HERPES SIMPLEX
  7. VALACYCLOVIR HCL [Concomitant]
     Indication: HERPES SIMPLEX
     Dosage: 500MG

REACTIONS (1)
  - HERPES SIMPLEX [None]
